FAERS Safety Report 4359725-9 (Version None)
Quarter: 2004Q2

REPORT INFORMATION
  Report Type: 
  Country: None (occurrence: None)
  Receive Date: 20040513
  Receipt Date: 20040428
  Transmission Date: 20050107
  Serious: Yes (Death, Hospitalization)
  Sender: FDA-Public Use
  Company Number: S04-FRA-01585-01

PATIENT
  Age: 83 Year
  Sex: Female
  Weight: 80 kg

DRUGS (3)
  1. CITALOPRAM HYDROBROMIDE [Suspect]
     Indication: DEPRESSION
     Dosage: 20 MG QD PO
     Route: 048
     Dates: start: 20040310, end: 20040323
  2. DIGOXIN [Concomitant]
  3. TRIAMETERENE AND HYDROCHLOROTHIAZIDE [Concomitant]

REACTIONS (9)
  - AGITATION [None]
  - CENTRAL PONTINE MYELINOLYSIS [None]
  - CEREBROVASCULAR ACCIDENT [None]
  - CONFUSIONAL STATE [None]
  - DECREASED INTEREST [None]
  - DEPRESSED LEVEL OF CONSCIOUSNESS [None]
  - DISSOCIATION [None]
  - HYPONATRAEMIA [None]
  - PNEUMONIA [None]
